FAERS Safety Report 7627069-5 (Version None)
Quarter: 2011Q3

REPORT INFORMATION
  Report Type: 
  Country: None (occurrence: None)
  Receive Date: 20110701
  Receipt Date: 20110207
  Transmission Date: 20111222
  Serious: Yes (Disabling)
  Sender: FDA-Public Use
  Company Number: 7041343

PATIENT
  Age: 59 Year
  Sex: Male

DRUGS (2)
  1. REBIF [Suspect]
     Indication: PRIMARY PROGRESSIVE MULTIPLE SCLEROSIS
     Dosage: 44 MCG, 3 IN 1 WK, SUBCUTANEOUS
     Route: 058
     Dates: start: 20100419, end: 20110101
  2. CYTOXAN [Concomitant]

REACTIONS (6)
  - MULTIPLE SCLEROSIS [None]
  - MICTURITION URGENCY [None]
  - URINARY INCONTINENCE [None]
  - URINARY TRACT INFECTION [None]
  - POLLAKIURIA [None]
  - ASTHENIA [None]
